FAERS Safety Report 24425086 (Version 1)
Quarter: 2024Q4

REPORT INFORMATION
  Report Type: Report from Study
  Country: BR (occurrence: BR)
  Receive Date: 20241010
  Receipt Date: 20241010
  Transmission Date: 20250114
  Serious: Yes (Other)
  Sender: TAKEDA
  Company Number: BR-TAKEDA-2021TUS060643

PATIENT
  Sex: Female

DRUGS (1)
  1. HUMAN IMMUNOGLOBULIN G\HYALURONIDASE RECOMBINANT HUMAN [Suspect]
     Active Substance: HUMAN IMMUNOGLOBULIN G\HYALURONIDASE (HUMAN RECOMBINANT)
     Indication: Primary immunodeficiency syndrome
     Dosage: 25 GRAM, 1/WEEK
     Route: 058

REACTIONS (7)
  - Pneumonia [Unknown]
  - Drug resistance [Unknown]
  - Sinusitis [Unknown]
  - Gastroenteritis [Unknown]
  - Urinary tract infection [Unknown]
  - Infection [Unknown]
  - Wrong technique in product usage process [Unknown]
